FAERS Safety Report 10255536 (Version 1)
Quarter: 2014Q2

REPORT INFORMATION
  Report Type: Spontaneous
  Country: US (occurrence: None)
  Receive Date: 20140522
  Receipt Date: 20140522
  Transmission Date: 20141212
  Serious: No
  Sender: FDA-Public Use
  Company Number: 1000066332

PATIENT
  Age: 71 Year
  Sex: Male

DRUGS (7)
  1. TUDORZA PRESSAIR (ACLIDINIUM BROMIDE) (400 MICROGRAM, POWDER) [Suspect]
     Indication: EMPHYSEMA
     Dosage: 1600 MCG (800 MCG, 2 I N 1 D) RESPIRATORY (INHALATION)
     Route: 055
     Dates: start: 20140327, end: 20140403
  2. NITRIN (GLYCERYL TRINITRATE) [Concomitant]
  3. SIMVASTATIN [Concomitant]
  4. METOPROLOL [Concomitant]
  5. PROAIR HFA (SALBUTAMOL SULFATE) [Concomitant]
  6. ADVAIR (FLUTICASONE, SALMETEROL) [Concomitant]
  7. OMEPRAZOLE [Concomitant]

REACTIONS (4)
  - Accidental overdose [None]
  - Headache [None]
  - Flushing [None]
  - Blood urine present [None]
